FAERS Safety Report 6738337-3 (Version None)
Quarter: 2010Q2

REPORT INFORMATION
  Report Type: 
  Country: None (occurrence: None)
  Receive Date: 20100524
  Receipt Date: 20100512
  Transmission Date: 20101027
  Serious: Yes (Other)
  Sender: FDA-Public Use
  Company Number: ES-ELI_LILLY_AND_COMPANY-ES201002006878

PATIENT
  Sex: Female

DRUGS (9)
  1. BYETTA [Suspect]
     Indication: DIABETES MELLITUS
     Dosage: 10 UG, UNKNOWN
     Route: 058
     Dates: start: 20090311, end: 20091223
  2. METFORMIN [Concomitant]
     Indication: METABOLIC SYNDROME
     Dosage: UNK, UNKNOWN
     Route: 065
  3. GLIMEPIRIDA [Concomitant]
     Indication: METABOLIC SYNDROME
     Dosage: UNK, UNKNOWN
     Route: 066
  4. ENALAPRIL [Concomitant]
     Indication: METABOLIC SYNDROME
     Dosage: UNK, UNKNOWN
     Route: 065
  5. LOSARTAN POTASSIUM [Concomitant]
     Indication: METABOLIC SYNDROME
     Dosage: UNK, UNKNOWN
     Route: 065
  6. VERAPAMILO [Concomitant]
     Indication: METABOLIC SYNDROME
     Dosage: UNK, UNKNOWN
     Route: 065
  7. ATORVASTATINA [Concomitant]
     Dosage: UNK, UNKNOWN
     Route: 065
  8. DOXAZOSINA [Concomitant]
     Indication: DEPRESSION
     Dosage: UNK, UNKNOWN
     Route: 065
  9. PAROXETINA [Concomitant]
     Indication: DYSTHYMIC DISORDER
     Dosage: UNK, UNKNOWN
     Route: 065

REACTIONS (2)
  - CHOLELITHIASIS [None]
  - WEIGHT DECREASED [None]
